FAERS Safety Report 4510085-X (Version None)
Quarter: 2004Q4

REPORT INFORMATION
  Report Type: 
  Country: None (occurrence: None)
  Receive Date: 20041112
  Receipt Date: 20041103
  Transmission Date: 20050328
  Serious: Yes (Death, Hospitalization)
  Sender: FDA-Public Use
  Company Number: A-CH2004-06046

PATIENT
  Age: 70 Year
  Sex: Female

DRUGS (9)
  1. TRACLEER [Suspect]
     Indication: PULMONARY HYPERTENSION
     Dosage: SEE IMAGE
     Route: 048
     Dates: start: 20040212, end: 20040311
  2. TRACLEER [Suspect]
     Indication: PULMONARY HYPERTENSION
     Dosage: SEE IMAGE
     Route: 048
     Dates: start: 20040312, end: 20040411
  3. ALDACTONE [Concomitant]
  4. FOLIC ACID [Concomitant]
  5. LASIX [Concomitant]
  6. OXAZEPAM [Concomitant]
  7. CALCI D [Concomitant]
  8. OXYGEN (OXYGEN) [Concomitant]
  9. BUMETANIDE [Concomitant]

REACTIONS (9)
  - CARDIAC ARREST [None]
  - CARDIAC FAILURE [None]
  - CHEST PAIN [None]
  - CONDITION AGGRAVATED [None]
  - FLUID OVERLOAD [None]
  - HOT FLUSH [None]
  - MALAISE [None]
  - RESUSCITATION [None]
  - SHOCK [None]
